FAERS Safety Report 12345247 (Version 2)
Quarter: 2016Q2

REPORT INFORMATION
  Report Type: Spontaneous
  Country: US (occurrence: US)
  Receive Date: 20160507
  Receipt Date: 20160630
  Transmission Date: 20160815
  Serious: No
  Sender: FDA-Public Use
  Company Number: US-JNJFOC-20160405815

PATIENT
  Age: 72 Year
  Sex: Male
  Weight: 133.81 kg

DRUGS (18)
  1. XARELTO [Suspect]
     Active Substance: RIVAROXABAN
     Indication: DEEP VEIN THROMBOSIS
     Route: 048
     Dates: start: 201506, end: 20160406
  2. XARELTO [Suspect]
     Active Substance: RIVAROXABAN
     Indication: THROMBOSIS
     Route: 048
  3. XARELTO [Suspect]
     Active Substance: RIVAROXABAN
     Indication: THROMBOSIS
     Route: 048
     Dates: start: 201506, end: 20160406
  4. CHROMIUM PICOLINATE [Concomitant]
     Active Substance: CHROMIUM PICOLINATE
     Route: 065
  5. XARELTO [Suspect]
     Active Substance: RIVAROXABAN
     Indication: DEEP VEIN THROMBOSIS
     Route: 048
     Dates: start: 201506, end: 2015
  6. FUROSEMIDE. [Concomitant]
     Active Substance: FUROSEMIDE
     Dosage: 3-4 TIMES DAILY
     Route: 065
  7. XARELTO [Suspect]
     Active Substance: RIVAROXABAN
     Indication: DEEP VEIN THROMBOSIS
     Route: 048
  8. ZETIA [Concomitant]
     Active Substance: EZETIMIBE
     Route: 065
  9. BABY ASPIRIN [Concomitant]
     Active Substance: ASPIRIN
     Route: 065
  10. XARELTO [Suspect]
     Active Substance: RIVAROXABAN
     Indication: THROMBOSIS
     Route: 048
     Dates: start: 201506, end: 2015
  11. KLOR-CON [Concomitant]
     Active Substance: POTASSIUM CHLORIDE
     Route: 065
  12. LOSARTAN. [Concomitant]
     Active Substance: LOSARTAN
     Route: 065
  13. METFORMIN HCL [Concomitant]
     Active Substance: METFORMIN HYDROCHLORIDE
     Route: 065
  14. METOPROLOL. [Concomitant]
     Active Substance: METOPROLOL
     Route: 065
  15. COQ 10 [Concomitant]
     Active Substance: UBIDECARENONE
     Route: 065
  16. NOVOLOG [Concomitant]
     Active Substance: INSULIN ASPART
     Dosage: 1-3 TIMES DAILY
     Route: 065
  17. CINNAMON. [Concomitant]
     Active Substance: CINNAMON
     Route: 065
  18. METHIMAZOLE. [Concomitant]
     Active Substance: METHIMAZOLE
     Route: 065

REACTIONS (2)
  - Inappropriate schedule of drug administration [Unknown]
  - Epistaxis [Recovering/Resolving]

NARRATIVE: CASE EVENT DATE: 201602
